FAERS Safety Report 15312516 (Version 5)
Quarter: 2018Q4

REPORT INFORMATION
  Report Type: Spontaneous
  Country: US (occurrence: US)
  Receive Date: 20180823
  Receipt Date: 20181217
  Transmission Date: 20190204
  Serious: No
  Sender: FDA-Public Use
  Company Number: US-SA-2018SA231449

PATIENT
  Age: 56 Year
  Sex: Female
  Weight: 68.03 kg

DRUGS (24)
  1. METOPROLOL SUCCINATE. [Concomitant]
     Active Substance: METOPROLOL SUCCINATE
  2. OMEGA 3 [DOCOSAHEXAENOIC ACID;EICOSAPENTAENOIC ACID] [Concomitant]
  3. ESZOPICLONE. [Concomitant]
     Active Substance: ESZOPICLONE
  4. OXYCODONE AND ACETAMINOPHEN [Concomitant]
     Active Substance: ACETAMINOPHEN\OXYCODONE HYDROCHLORIDE
  5. AZITHROMYCIN ANHYDROUS. [Concomitant]
     Active Substance: AZITHROMYCIN ANHYDROUS
  6. NITROGLYCERIN. [Concomitant]
     Active Substance: NITROGLYCERIN
  7. ZOLOFT [Concomitant]
     Active Substance: SERTRALINE HYDROCHLORIDE
  8. LIDOCAINE. [Concomitant]
     Active Substance: LIDOCAINE
  9. VIIBRYD [Concomitant]
     Active Substance: VILAZODONE HYDROCHLORIDE
  10. HYDROCODONE/ACETAMINOPHEN [Concomitant]
     Active Substance: ACETAMINOPHEN\HYDROCODONE
  11. AMBIEN [Concomitant]
     Active Substance: ZOLPIDEM TARTRATE
  12. LIVALO [Concomitant]
     Active Substance: PITAVASTATIN CALCIUM
  13. LUNESTA [Concomitant]
     Active Substance: ESZOPICLONE
  14. PREDNISONE. [Concomitant]
     Active Substance: PREDNISONE
  15. OMEPRAZOLE. [Concomitant]
     Active Substance: OMEPRAZOLE
  16. PRALUENT [Suspect]
     Active Substance: ALIROCUMAB
     Indication: TYPE IIA HYPERLIPIDAEMIA
     Dosage: UNK UNK, QOW
     Route: 058
     Dates: start: 201808
  17. ALIROCUMAB PREFILLED PEN [Suspect]
     Active Substance: ALIROCUMAB
     Indication: TYPE IIA HYPERLIPIDAEMIA
     Dosage: 75 MG, QOW
     Route: 058
     Dates: start: 201808
  18. BEVESPI AEROSPHERE [Concomitant]
     Active Substance: FORMOTEROL FUMARATE\GLYCOPYRROLATE
  19. HORIZANT [Concomitant]
     Active Substance: GABAPENTIN ENACARBIL
  20. VITAMIN B12 [Concomitant]
     Active Substance: CYANOCOBALAMIN
  21. VITAMIN D3 [Concomitant]
     Active Substance: CHOLECALCIFEROL
  22. EUCRISA [Concomitant]
     Active Substance: CRISABOROLE
  23. PROMETHAZINE [Concomitant]
     Active Substance: PROMETHAZINE\PROMETHAZINE HYDROCHLORIDE
  24. SOLIQUA 100/33 [Concomitant]
     Active Substance: INSULIN GLARGINE\LIXISENATIDE

REACTIONS (14)
  - Myalgia [Unknown]
  - Memory impairment [Unknown]
  - Influenza [Unknown]
  - Malaise [Unknown]
  - Dizziness [Unknown]
  - Rhinorrhoea [Unknown]
  - Sinusitis [Unknown]
  - Cough [Unknown]
  - Pain [Unknown]
  - Throat irritation [Unknown]
  - Confusional state [Unknown]
  - Respiratory tract congestion [Unknown]
  - Ill-defined disorder [Unknown]
  - Blood pressure decreased [Unknown]

NARRATIVE: CASE EVENT DATE: 2018
